FAERS Safety Report 7368242-3 (Version None)
Quarter: 2011Q1

REPORT INFORMATION
  Report Type: 
  Country: None (occurrence: None)
  Receive Date: 20110323
  Receipt Date: 20110321
  Transmission Date: 20110831
  Serious: Yes (Other)
  Sender: FDA-Public Use
  Company Number: US-PFIZER INC-2011061538

PATIENT
  Sex: Male

DRUGS (1)
  1. MEDROL [Suspect]
     Indication: OSTEITIS
     Dosage: 4 MG, UNK
     Route: 048
     Dates: start: 20110315, end: 20110321

REACTIONS (1)
  - MUSCULAR WEAKNESS [None]
